FAERS Safety Report 9379434 (Version 1)
Quarter: 2013Q2

REPORT INFORMATION
  Report Type: Spontaneous
  Country: IN (occurrence: None)
  Receive Date: 20130627
  Receipt Date: 20130627
  Transmission Date: 20140414
  Serious: Yes (Death, Hospitalization)
  Sender: FDA-Public Use
  Company Number: B0902115A

PATIENT
  Age: 12 Year
  Sex: Male

DRUGS (7)
  1. LAMOTRIGINE [Suspect]
     Indication: EPILEPSY
     Route: 048
  2. VALPROATE SODIUM [Suspect]
     Indication: EPILEPSY
     Route: 048
  3. CLONAZEPAM [Concomitant]
  4. CHLOROQUINE [Concomitant]
  5. CEFEXIME/POTASSIUM CLAVUL [Concomitant]
  6. PARACETAMOL [Concomitant]
  7. PRIMAQUINE [Concomitant]

REACTIONS (6)
  - Toxic epidermal necrolysis [None]
  - Delirium [None]
  - Disorientation [None]
  - Blood pressure decreased [None]
  - Respiratory failure [None]
  - Drug interaction [None]
